FAERS Safety Report 21090059 (Version 1)
Quarter: 2022Q3

REPORT INFORMATION
  Report Type: Spontaneous
  Country: IT (occurrence: IT)
  Receive Date: 20220715
  Receipt Date: 20220715
  Transmission Date: 20221027
  Serious: Yes (Death)
  Sender: FDA-Public Use
  Company Number: IT-FreseniusKabi-FK202209949

PATIENT
  Age: 81 Year
  Sex: Female

DRUGS (1)
  1. PROPOFOL [Suspect]
     Active Substance: PROPOFOL
     Indication: Product used for unknown indication
     Dosage: UNK
     Route: 042

REACTIONS (5)
  - Toxicity to various agents [Fatal]
  - Condition aggravated [Fatal]
  - Homicide [Fatal]
  - Haemorrhagic stroke [Fatal]
  - Hypertensive crisis [Fatal]
